FAERS Safety Report 5927880-2 (Version None)
Quarter: 2008Q4

REPORT INFORMATION
  Report Type: 
  Country: None (occurrence: None)
  Receive Date: 20081022
  Receipt Date: 20081022
  Transmission Date: 20090506
  Serious: Yes (Life-Threatening, Disabling, Other)
  Sender: FDA-Public Use
  Company Number: None

PATIENT
  Age: 72 Year
  Sex: Female
  Weight: 65.7716 kg

DRUGS (1)
  1. RECLAST [Suspect]
     Indication: OSTEOPOROSIS
     Dosage: ONE DOSE -SPRING 2006 ONCE YEARLY IV
     Route: 042
     Dates: start: 20080322, end: 20080322

REACTIONS (3)
  - NEPHROLITHIASIS [None]
  - PAIN [None]
  - SPINAL CORD INFECTION [None]
